FAERS Safety Report 9664667 (Version 1)
Quarter: 2013Q4

REPORT INFORMATION
  Report Type: Spontaneous
  Country: RO (occurrence: RO)
  Receive Date: 20131101
  Receipt Date: 20131101
  Transmission Date: 20140711
  Serious: Yes (Death)
  Sender: FDA-Public Use
  Company Number: RO-TEVA-440787ISR

PATIENT
  Sex: Male

DRUGS (8)
  1. LAMIVUDINE W/ ZIDOVUDINE [Suspect]
     Route: 065
  2. LOPINAVIR W/RITONAVIR [Suspect]
     Route: 065
  3. ENFUVIRTIDE [Suspect]
     Route: 065
  4. MYCOBUTIN [Suspect]
     Route: 065
  5. ISONIAZID [Suspect]
     Route: 065
  6. ETHAMBUTOL [Suspect]
     Route: 065
  7. PYRAZINAMIDE [Suspect]
     Route: 065
  8. STREPTOMYCIN [Suspect]
     Route: 065

REACTIONS (1)
  - Haemorrhage neonatal [Fatal]
